FAERS Safety Report 18733393 (Version 1)
Quarter: 2021Q1

REPORT INFORMATION
  Report Type: Spontaneous
  Country: CN (occurrence: CN)
  Receive Date: 20210113
  Receipt Date: 20210113
  Transmission Date: 20210419
  Serious: Yes (Hospitalization)
  Sender: FDA-Public Use
  Company Number: CN-DRREDDYS-GPV/CHN/21/0130999

PATIENT
  Age: 38 Year
  Sex: Male
  Weight: 65 kg

DRUGS (3)
  1. PERPHENAZINE TABLETS [Concomitant]
     Active Substance: PERPHENAZINE
     Indication: SCHIZOPHRENIA
     Dosage: 16.000000MG TWICE DAILY
     Route: 048
     Dates: start: 20201119, end: 20201130
  2. OLANZAPINE. [Suspect]
     Active Substance: OLANZAPINE
     Indication: SCHIZOPHRENIA
     Dosage: 10MG TWICE A DAY
     Route: 048
     Dates: start: 20201119, end: 20201130
  3. CLOZAPINE TABLETS [Concomitant]
     Active Substance: CLOZAPINE
     Indication: SCHIZOPHRENIA
     Dosage: 50.000000MG,QD
     Route: 048
     Dates: start: 20201119, end: 20201130

REACTIONS (1)
  - Drooling [Recovering/Resolving]

NARRATIVE: CASE EVENT DATE: 20201120
